FAERS Safety Report 25522681 (Version 1)
Quarter: 2025Q3

REPORT INFORMATION
  Report Type: Report from Study
  Country: EU (occurrence: EU)
  Receive Date: 20250707
  Receipt Date: 20250707
  Transmission Date: 20251020
  Serious: Yes (Hospitalization)
  Sender: AMGEN
  Company Number: EU-ROCHE-10000322239

PATIENT

DRUGS (3)
  1. PANITUMUMAB [Suspect]
     Active Substance: PANITUMUMAB
     Indication: Neoplasm malignant
     Dosage: DATE OF MOST RECENT DOSE OF CANCER TREATMENTPRIOR TO AE/SAE ONSET 16-DEC-2024 DOSE OF LAST CANCER TR
     Route: 040
  2. FLUOROURACIL [Suspect]
     Active Substance: FLUOROURACIL
     Indication: Neoplasm malignant
     Dosage: DATE OF MOST RECENT DOSE OF CANCER TREATMENTPRIOR TO AE/SAE ONSET 16-DEC-2024 DOSE OF LAST CANCER TR
     Route: 040
     Dates: start: 20241203
  3. LEUCOVORIN CALCIUM [Suspect]
     Active Substance: LEUCOVORIN CALCIUM
     Indication: Neoplasm malignant
     Dosage: DATE OF MOST RECENT DOSE OF CANCER TREATMENTPRIOR TO AE/SAE ONSET 16-DEC-2024 DOSE OF LAST CANCER TR
     Route: 040
     Dates: start: 20241203

REACTIONS (1)
  - Pneumonia [Recovered/Resolved]

NARRATIVE: CASE EVENT DATE: 20250108
